FAERS Safety Report 20952122 (Version 1)
Quarter: 2022Q2

REPORT INFORMATION
  Report Type: Spontaneous
  Country: CA (occurrence: CA)
  Receive Date: 20220613
  Receipt Date: 20220613
  Transmission Date: 20220721
  Serious: Yes (Hospitalization)
  Sender: FDA-Public Use
  Company Number: CA-TEVA-2022-CA-2044786

PATIENT
  Age: 60 Year
  Sex: Female

DRUGS (2)
  1. NAPROXEN [Suspect]
     Active Substance: NAPROXEN
     Dosage: 10 MILLIGRAM DAILY;
     Route: 048
  2. ELIQUIS [Suspect]
     Active Substance: APIXABAN
     Dosage: 500 MILLIGRAM DAILY;
     Route: 065

REACTIONS (3)
  - Asthenia [Recovered/Resolved]
  - Haemorrhage [Recovered/Resolved]
  - Faeces discoloured [Recovered/Resolved]
